FAERS Safety Report 20842984 (Version 1)
Quarter: 2022Q2

REPORT INFORMATION
  Report Type: Spontaneous
  Country: BR (occurrence: BR)
  Receive Date: 20220518
  Receipt Date: 20220518
  Transmission Date: 20220720
  Serious: Yes (Other)
  Sender: FDA-Public Use
  Company Number: BR-JNJFOC-20220512462

PATIENT
  Sex: Male

DRUGS (2)
  1. SPRAVATO [Suspect]
     Active Substance: ESKETAMINE
     Indication: Depression
     Dosage: SESSION 1 AND 2
  2. SPRAVATO [Suspect]
     Active Substance: ESKETAMINE
     Dosage: SESSION 3 AND 4

REACTIONS (4)
  - Panic disorder [Unknown]
  - Agitation [Unknown]
  - Dissociative disorder [Unknown]
  - Dizziness [Unknown]
